FAERS Safety Report 15026875 (Version 1)
Quarter: 2018Q2

REPORT INFORMATION
  Report Type: Spontaneous
  Country: US (occurrence: US)
  Receive Date: 20180619
  Receipt Date: 20180619
  Transmission Date: 20180711
  Serious: Yes (Other)
  Sender: FDA-Public Use
  Company Number: US-JNJFOC-20180605764

PATIENT
  Age: 9 Year
  Sex: Female
  Weight: 28.58 kg

DRUGS (1)
  1. NEUTROGENA ULTRA SHEER FACE AND BODY SUNSCREEN BROAD SPECTRUM SPF70 [Suspect]
     Active Substance: AVOBENZONE\HOMOSALATE\OCTISALATE\OCTOCRYLENE\OXYBENZONE
     Indication: PROPHYLAXIS AGAINST SOLAR RADIATION
     Dosage: FOUR SWIPES ON TIME
     Route: 061
     Dates: start: 20180602, end: 20180602

REACTIONS (2)
  - Application site swelling [Recovering/Resolving]
  - Application site dryness [Recovering/Resolving]

NARRATIVE: CASE EVENT DATE: 20180602
